FAERS Safety Report 4863178-1 (Version None)
Quarter: 2005Q4

REPORT INFORMATION
  Report Type: 
  Country: None (occurrence: None)
  Receive Date: 20051219
  Receipt Date: 20051205
  Transmission Date: 20060501
  Serious: Yes (Life-Threatening, Hospitalization, Disabling)
  Sender: FDA-Public Use
  Company Number: MK200512-0097-1

PATIENT
  Age: 69 Year
  Sex: Female

DRUGS (6)
  1. OPTIRAY 300 [Suspect]
     Indication: COMPUTERISED TOMOGRAM THORAX
     Dosage: 70 ML ONE TIME IV
     Route: 042
     Dates: start: 20051201, end: 20051201
  2. SYNTHROID                 (LEVOTHYROXIEN) [Concomitant]
  3. ACIPHEX [Concomitant]
  4. PLAVIX [Concomitant]
  5. METOPROLOL [Concomitant]
  6. SULFASALAZINE [Concomitant]

REACTIONS (6)
  - BRAIN DEATH [None]
  - CARDIO-RESPIRATORY ARREST [None]
  - DYSPNOEA [None]
  - HYPERHIDROSIS [None]
  - LARYNGEAL OEDEMA [None]
  - PRURITUS [None]
